FAERS Safety Report 4956701-X (Version None)
Quarter: 2006Q1

REPORT INFORMATION
  Report Type: 
  Country: None (occurrence: None)
  Receive Date: 20060329
  Receipt Date: 20050727
  Transmission Date: 20060701
  Serious: Yes (Hospitalization)
  Sender: FDA-Public Use
  Company Number: US-GLAXOSMITHKLINE-A0567844A

PATIENT
  Age: 28 Year
  Sex: Female
  Weight: 77.3 kg

DRUGS (10)
  1. LAMICTAL [Suspect]
     Indication: DRUG USE FOR UNKNOWN INDICATION
     Route: 048
     Dates: start: 20050602, end: 20050625
  2. CELEXA [Concomitant]
     Dosage: 40MG PER DAY
  3. KEPPRA [Concomitant]
     Indication: BIPOLAR DISORDER
     Dosage: 1500MG TWICE PER DAY
  4. GABITRIL [Concomitant]
     Dosage: 8MG AT NIGHT
  5. PLAQUENIL [Concomitant]
     Dosage: 200MG TWICE PER DAY
     Route: 048
  6. ASPIRIN [Concomitant]
     Dosage: 81MG PER DAY
     Route: 048
  7. EVOXAC [Concomitant]
     Dosage: 30MG TWICE PER DAY
     Route: 048
  8. ZYRTEC [Concomitant]
     Dosage: 10MG AT NIGHT
     Route: 048
  9. MULTI-VITAMIN [Concomitant]
     Dosage: 1TAB PER DAY
     Route: 048
  10. KLONOPIN [Concomitant]
     Dosage: 1MG AS REQUIRED
     Route: 048

REACTIONS (27)
  - ALOPECIA [None]
  - ASTHENIA [None]
  - BACK PAIN [None]
  - DEHYDRATION [None]
  - DIARRHOEA [None]
  - DYSPNOEA [None]
  - EPISTAXIS [None]
  - EYE PAIN [None]
  - FATIGUE [None]
  - GASTROENTERITIS [None]
  - HEADACHE [None]
  - HYPERTENSION [None]
  - INCOHERENT [None]
  - LYMPHOPENIA [None]
  - MALAISE [None]
  - MENINGITIS [None]
  - MENINGITIS ASEPTIC [None]
  - NAUSEA [None]
  - NECK PAIN [None]
  - PAIN IN EXTREMITY [None]
  - PHOTOPHOBIA [None]
  - PLEURITIC PAIN [None]
  - PYREXIA [None]
  - RASH GENERALISED [None]
  - SICCA SYNDROME [None]
  - VIRAL INFECTION [None]
  - VOMITING [None]
